FAERS Safety Report 20712749 (Version 1)
Quarter: 2022Q2

REPORT INFORMATION
  Report Type: Spontaneous
  Country: GB (occurrence: GB)
  Receive Date: 20220415
  Receipt Date: 20220415
  Transmission Date: 20220721
  Serious: Yes (Other)
  Sender: FDA-Public Use
  Company Number: GB-SANOFI-01040720

PATIENT

DRUGS (2)
  1. SUGAMMADEX SODIUM [Suspect]
     Active Substance: SUGAMMADEX SODIUM
     Indication: Surgery
     Dosage: UNK
     Dates: start: 20220222
  2. TARGOCID [Suspect]
     Active Substance: TEICOPLANIN
     Indication: Surgery
     Dosage: 400 MILLIGRAM (MG)
     Route: 042
     Dates: start: 20220222

REACTIONS (3)
  - Anaphylactic reaction [Unknown]
  - Hypotension [Recovered/Resolved]
  - Oxygen saturation decreased [Recovered/Resolved]

NARRATIVE: CASE EVENT DATE: 20220222
